FAERS Safety Report 6537224-3 (Version None)
Quarter: 2010Q1

REPORT INFORMATION
  Report Type: 
  Country: None (occurrence: None)
  Receive Date: 20100114
  Receipt Date: 20100108
  Transmission Date: 20100710
  Serious: Yes (Other)
  Sender: FDA-Public Use
  Company Number: JP-ROCHE-676138

PATIENT
  Age: 56 Year
  Sex: Male

DRUGS (2)
  1. CELLCEPT [Suspect]
     Indication: LIVER TRANSPLANT
     Route: 048
     Dates: end: 20071201
  2. TACROLIMUS HYDRATE [Concomitant]

REACTIONS (3)
  - HEPATIC CIRRHOSIS [None]
  - HEPATIC NEOPLASM MALIGNANT [None]
  - HEPATITIS C [None]
